FAERS Safety Report 14321833 (Version 3)
Quarter: 2020Q2

REPORT INFORMATION
  Report Type: Report from Study
  Country: FI (occurrence: FI)
  Receive Date: 20171224
  Receipt Date: 20200429
  Transmission Date: 20200713
  Serious: Yes (Hospitalization)
  Sender: FDA-Public Use
  Company Number: FI-ROCHE-2040657

PATIENT
  Age: 71 Year
  Sex: Female
  Weight: 147.7 kg

DRUGS (9)
  1. ACICLOVIR [Concomitant]
     Active Substance: ACYCLOVIR
     Route: 048
     Dates: start: 20171208
  2. SOLU-MEDROL [Concomitant]
     Active Substance: METHYLPREDNISOLONE SODIUM SUCCINATE
     Route: 065
     Dates: start: 20200328
  3. OBINUTUZUMAB. [Suspect]
     Active Substance: OBINUTUZUMAB
     Dosage: DATE OF  LAST DOSE PRIOR TO AE: 06/06/2018
     Route: 042
     Dates: start: 20180606
  4. FILGRASTIM [Concomitant]
     Active Substance: FILGRASTIM
     Route: 058
     Dates: start: 20171211
  5. IBRUTINIB [Suspect]
     Active Substance: IBRUTINIB
     Dosage: DATE OF LAST DOSE (140 MG) PRIOR TO AE ONSET: 02/JAN/2019
     Route: 048
     Dates: start: 20181217
  6. OBINUTUZUMAB. [Suspect]
     Active Substance: OBINUTUZUMAB
     Indication: CHRONIC LYMPHOCYTIC LEUKAEMIA
     Dosage: DATE OF MOST RECENT DOSE RECIEVED ON 08/DEC/2017?CYCLE 1: 100 MG, D1; 900 MG, D1(2); 1000 MG, D8+15,
     Route: 042
     Dates: start: 20171207
  7. ALLOPURINOL. [Concomitant]
     Active Substance: ALLOPURINOL
     Route: 048
     Dates: start: 20171205
  8. IBRUTINIB [Suspect]
     Active Substance: IBRUTINIB
     Indication: CHRONIC LYMPHOCYTIC LEUKAEMIA
     Dosage: LAST DOSE PRIOR TO SAE: 10/DEC/2017
     Route: 048
     Dates: start: 20171207, end: 20171211
  9. VENETOCLAX. [Suspect]
     Active Substance: VENETOCLAX
     Indication: CHRONIC LYMPHOCYTIC LEUKAEMIA
     Dosage: DATE OF LAST DOSE (400 MG) PRIOR TO AE ONSET: 07/DEC/2018
     Route: 048
     Dates: start: 20181011

REACTIONS (3)
  - Coronary artery disease [Not Recovered/Not Resolved]
  - Pneumonia [Recovered/Resolved]
  - Pneumonia [Not Recovered/Not Resolved]

NARRATIVE: CASE EVENT DATE: 20171208
